FAERS Safety Report 4594452-4 (Version None)
Quarter: 2005Q1

REPORT INFORMATION
  Report Type: 
  Country: None (occurrence: None)
  Receive Date: 20050301
  Receipt Date: 20040305
  Transmission Date: 20050727
  Serious: Yes (Life-Threatening, Hospitalization)
  Sender: FDA-Public Use
  Company Number: US-GLAXOSMITHKLINE-A0501445A

PATIENT
  Age: 85 Year
  Sex: Female
  Weight: 59.1 kg

DRUGS (1)
  1. VALTREX [Suspect]
     Indication: HERPES ZOSTER
     Dosage: 1000MG THREE TIMES PER DAY
     Route: 048
     Dates: start: 20030801, end: 20030807

REACTIONS (3)
  - MEDICATION ERROR [None]
  - MENTAL STATUS CHANGES [None]
  - RENAL FAILURE ACUTE [None]
